FAERS Safety Report 18513357 (Version 2)
Quarter: 2020Q4

REPORT INFORMATION
  Report Type: Spontaneous
  Country: US (occurrence: US)
  Receive Date: 20201117
  Receipt Date: 20201117
  Transmission Date: 20210114
  Serious: No
  Sender: FDA-Public Use
  Company Number: US-BTGSP-US-BTGSP-20-0186

PATIENT
  Age: 16 Year
  Sex: Male

DRUGS (1)
  1. CROFAB [Suspect]
     Active Substance: CROTALIDAE POLYVALENT IMMUNE FAB (OVINE)
     Indication: SNAKE BITE
     Dosage: TOTAL 18 VIALS IN 10 DAYS OF HOSPITALISATION
     Route: 042
     Dates: start: 201805

REACTIONS (6)
  - Dyspnoea [Unknown]
  - Nausea [Unknown]
  - Muscle disorder [Unknown]
  - Diarrhoea [Unknown]
  - Chest pain [Unknown]
  - Blood pressure difference of extremities [Unknown]

NARRATIVE: CASE EVENT DATE: 201805
